FAERS Safety Report 9838051 (Version 1)
Quarter: 2014Q1

REPORT INFORMATION
  Report Type: Spontaneous
  Country: GB (occurrence: GB)
  Receive Date: 20140123
  Receipt Date: 20140123
  Transmission Date: 20141002
  Serious: Yes (Hospitalization, Other)
  Sender: FDA-Public Use
  Company Number: GB-PFIZER INC-2014018136

PATIENT
  Age: 58 Year
  Sex: Male

DRUGS (8)
  1. METHYLPREDNISOLONE [Suspect]
     Indication: NEPHROTIC SYNDROME
     Dosage: 1 G, 1X/DAY
     Dates: start: 20131113
  2. ACETYLSALICYLIC ACID [Concomitant]
  3. ATORVASTATIN [Concomitant]
  4. CO-TRIMOXAZOLE [Concomitant]
  5. FUROSEMIDE [Concomitant]
  6. LANSOPRAZOLE [Concomitant]
  7. RAMIPRIL [Concomitant]
  8. RISEDRONIC ACID [Concomitant]

REACTIONS (5)
  - Loss of consciousness [Recovered/Resolved]
  - Stridor [Recovered/Resolved]
  - Injection site pain [Recovered/Resolved]
  - Dizziness [Recovered/Resolved]
  - Hyperhidrosis [Recovered/Resolved]
